FAERS Safety Report 10640345 (Version 1)
Quarter: 2014Q4

REPORT INFORMATION
  Report Type: Spontaneous
  Country: FR (occurrence: FR)
  Receive Date: 20141209
  Receipt Date: 20141209
  Transmission Date: 20150529
  Serious: Yes (Death)
  Sender: FDA-Public Use
  Company Number: FR-MALLINCKRODT-T201404276

PATIENT
  Age: 11 Year
  Sex: Male

DRUGS (10)
  1. OFIRMEV [Suspect]
     Active Substance: ACETAMINOPHEN
     Indication: APPENDICECTOMY
     Dosage: 1 DOSAGE FORM
     Route: 042
     Dates: start: 20141101
  2. TRACRIUM [Suspect]
     Active Substance: ATRACURIUM BESYLATE
     Indication: APPENDICECTOMY
     Dosage: 25 MILLIGRAM
     Route: 042
     Dates: start: 20141101
  3. SEVORANE [Suspect]
     Active Substance: SEVOFLURANE
     Indication: APPENDICECTOMY
     Dosage: UNK
     Route: 045
     Dates: start: 20141101
  4. DIPRIVAN [Suspect]
     Active Substance: PROPOFOL
     Indication: APPENDICECTOMY
     Dosage: 150 MILLIGRAM
     Route: 042
     Dates: start: 20141101
  5. PROFENID [Suspect]
     Active Substance: KETOPROFEN
     Indication: APPENDICECTOMY
     Dosage: 50 MILLIGRAM
     Route: 042
     Dates: start: 20141101
  6. HYPNOVEL [Concomitant]
     Active Substance: MIDAZOLAM\MIDAZOLAM HYDROCHLORIDE
     Indication: APPENDICECTOMY
     Dosage: UNK
     Route: 065
     Dates: start: 20141101
  7. KETAMINE [Suspect]
     Active Substance: KETAMINE
     Indication: APPENDICECTOMY
     Dosage: 10 MILLIGRAM
     Route: 042
  8. OXYGEN. [Suspect]
     Active Substance: OXYGEN
     Indication: APPENDICECTOMY
     Dosage: UNK
     Route: 045
     Dates: start: 20141101
  9. SUFENTANIL [Suspect]
     Active Substance: SUFENTANIL
     Indication: APPENDICECTOMY
     Dosage: UNK
     Route: 042
     Dates: start: 20141101
  10. NITROUS OXIDE. [Suspect]
     Active Substance: NITROUS OXIDE
     Indication: APPENDICECTOMY
     Dosage: UNK
     Route: 045
     Dates: start: 20141101

REACTIONS (1)
  - Shock haemorrhagic [Fatal]

NARRATIVE: CASE EVENT DATE: 20141101
